FAERS Safety Report 5546230-7 (Version None)
Quarter: 2007Q4

REPORT INFORMATION
  Report Type: 
  Country: None (occurrence: None)
  Receive Date: 20071211
  Receipt Date: 20071204
  Transmission Date: 20080405
  Serious: Yes (Death)
  Sender: FDA-Public Use
  Company Number: TW-AVENTIS-200721049GDDC

PATIENT
  Age: 69 Year
  Sex: Female
  Weight: 77.5 kg

DRUGS (19)
  1. LANTUS [Suspect]
     Route: 058
     Dates: start: 20070903, end: 20070914
  2. LANTUS [Suspect]
     Route: 058
     Dates: start: 20070928
  3. GLIMEPIRIDE [Concomitant]
     Route: 048
     Dates: start: 20070903
  4. LASIX [Concomitant]
     Indication: HYPERTENSION
     Route: 048
     Dates: end: 20070928
  5. LASIX [Concomitant]
     Dates: start: 20070928
  6. NOVOLOG MIX 70/30 [Concomitant]
     Route: 058
     Dates: end: 20070903
  7. EURODIN                            /00425901/ [Concomitant]
     Indication: ANXIETY
     Route: 048
     Dates: end: 20070903
  8. LACIPIL [Concomitant]
     Indication: HYPERTENSION
     Route: 048
  9. TENORMIN [Concomitant]
     Indication: HYPERTENSION
     Route: 048
  10. ZYLORIC [Concomitant]
     Indication: GOUT
     Route: 048
  11. CLARITYNE                          /00917501/ [Concomitant]
     Route: 048
     Dates: start: 20070928
  12. CELEBREX [Concomitant]
     Indication: GOUT
     Route: 048
     Dates: start: 20070813
  13. CELEBREX [Concomitant]
     Route: 048
     Dates: start: 20071022, end: 20071029
  14. LIPITOR [Concomitant]
     Route: 048
  15. STILNOX                            /00914901/ [Concomitant]
     Indication: ANXIETY
     Route: 048
     Dates: start: 20070903
  16. MIXTARD 30HM [Concomitant]
     Route: 058
     Dates: start: 20070914, end: 20070928
  17. CHLORPHENIRAMINE TAB [Concomitant]
     Route: 048
     Dates: start: 20070928
  18. KENACORT A                         /00031901/ [Concomitant]
     Indication: GOUT
     Dates: start: 20071022, end: 20071022
  19. GLUSTRONG [Concomitant]
     Indication: GOUT
     Route: 048
     Dates: start: 20071022, end: 20071029

REACTIONS (4)
  - COMA [None]
  - PRURITUS [None]
  - RASH [None]
  - RENAL FAILURE [None]
